FAERS Safety Report 21525579 (Version 1)
Quarter: 2022Q4

REPORT INFORMATION
  Report Type: Report from Study
  Country: US (occurrence: US)
  Receive Date: 20221031
  Receipt Date: 20221031
  Transmission Date: 20230113
  Serious: No
  Sender: FDA-Public Use
  Company Number: US-ABBVIE-4178978

PATIENT
  Sex: Female

DRUGS (1)
  1. IMBRUVICA [Suspect]
     Active Substance: IBRUTINIB
     Indication: Chronic lymphocytic leukaemia
     Dosage: TAKE 1 TABLET BY MOUTH ONCE DAILY ON DAY 1, AND DAY 2 WITH A FULL GLASS OF WATER AND THEN OFF ON ...
     Route: 048

REACTIONS (1)
  - Off label use [Unknown]
